FAERS Safety Report 24604716 (Version 1)
Quarter: 2024Q4

REPORT INFORMATION
  Report Type: Spontaneous
  Country: US (occurrence: US)
  Receive Date: 20241111
  Receipt Date: 20241111
  Transmission Date: 20250115
  Serious: Yes (Other)
  Sender: COOPERSURGICAL
  Company Number: US-COOPERSURGICAL, INC.-2024CPS003318

PATIENT
  Sex: Female
  Weight: 63.492 kg

DRUGS (4)
  1. PARAGARD T 380A [Suspect]
     Active Substance: COPPER
     Indication: Contraception
     Dosage: UNK
     Route: 015
     Dates: start: 20121017, end: 20200831
  2. SPIRONOLACTONE [Concomitant]
     Active Substance: SPIRONOLACTONE
     Indication: Acne
     Dosage: UNK
     Dates: start: 201901, end: 202103
  3. ACCUTANE [Concomitant]
     Active Substance: ISOTRETINOIN
     Indication: Acne
     Dosage: UNK
     Dates: start: 201403, end: 201409
  4. MINOCYCLINE [Concomitant]
     Active Substance: MINOCYCLINE HYDROCHLORIDE
     Indication: Acne
     Dosage: UNK
     Dates: start: 201304, end: 201312

REACTIONS (12)
  - Reproductive complication associated with device [Unknown]
  - Device breakage [Recovered/Resolved]
  - Foreign body in reproductive tract [Recovered/Resolved]
  - Complication of device removal [Recovered/Resolved]
  - Emotional disorder [Unknown]
  - Arthralgia [Unknown]
  - Irritable bowel syndrome [Unknown]
  - Back pain [Unknown]
  - Eye irritation [Unknown]
  - Abnormal uterine bleeding [Unknown]
  - Menstruation irregular [Unknown]
  - Dizziness [Unknown]

NARRATIVE: CASE EVENT DATE: 20140101
